FAERS Safety Report 18445936 (Version 2)
Quarter: 2020Q4

REPORT INFORMATION
  Report Type: Report from Study
  Country: CN (occurrence: CN)
  Receive Date: 20201030
  Receipt Date: 20201106
  Transmission Date: 20210114
  Serious: Yes (Other)
  Sender: FDA-Public Use
  Company Number: CN-BRISTOL-MYERS SQUIBB COMPANY-BMS-2020-090657

PATIENT
  Age: 57 Year
  Sex: Female

DRUGS (3)
  1. NIVOLUMAB [Suspect]
     Active Substance: NIVOLUMAB
     Indication: GASTRIC CANCER
     Dosage: 140 MILLIGRAM, Q2WK
     Route: 042
     Dates: start: 20200608
  2. CATEQUENTINIB. [Concomitant]
     Active Substance: CATEQUENTINIB
     Indication: PRODUCT USED FOR UNKNOWN INDICATION
     Route: 065
  3. ANALGESICS [Concomitant]
     Active Substance: UNSPECIFIED INGREDIENT
     Indication: PRODUCT USED FOR UNKNOWN INDICATION
     Dosage: SPECIFIC DRUG UNKNOWN
     Route: 065

REACTIONS (3)
  - Memory impairment [Unknown]
  - Intestinal obstruction [Unknown]
  - Gait disturbance [Unknown]

NARRATIVE: CASE EVENT DATE: 202010
